FAERS Safety Report 22913606 (Version 4)
Quarter: 2023Q4

REPORT INFORMATION
  Report Type: Report from Study
  Country: JP (occurrence: JP)
  Receive Date: 20230906
  Receipt Date: 20231027
  Transmission Date: 20240110
  Serious: Yes (Death, Life-Threatening, Hospitalization)
  Sender: FDA-Public Use
  Company Number: JP-JNJFOC-20230802862

PATIENT
  Age: 81 Year
  Sex: Female
  Weight: 54.2 kg

DRUGS (11)
  1. AMIVANTAMAB [Suspect]
     Active Substance: AMIVANTAMAB
     Indication: Non-small cell lung cancer
     Dosage: 25R VIAL
     Route: 058
     Dates: start: 20230711, end: 20230725
  2. BILANOA OD [Concomitant]
     Indication: Prophylaxis
     Route: 048
     Dates: start: 20201201
  3. GASLON [Concomitant]
     Active Substance: IRSOGLADINE MALEATE
     Indication: Stomatitis
     Route: 048
     Dates: start: 20201201
  4. MAGNESIUM OXIDE [Concomitant]
     Active Substance: MAGNESIUM OXIDE
     Indication: Constipation
     Route: 048
     Dates: start: 20211201
  5. AMLODIPINE [Concomitant]
     Active Substance: AMLODIPINE BESYLATE
     Indication: Hypertension
     Route: 048
     Dates: start: 20221101
  6. CELECOXIB [Concomitant]
     Active Substance: CELECOXIB
     Indication: Cancer pain
     Route: 048
     Dates: start: 20201201
  7. LANSOPRAZOLE [Concomitant]
     Active Substance: LANSOPRAZOLE
     Indication: Prophylaxis against gastrointestinal ulcer
     Route: 048
     Dates: start: 20201201
  8. METOCLOPRAMIDE [Concomitant]
     Active Substance: METOCLOPRAMIDE
     Indication: Prophylaxis of nausea and vomiting
     Route: 048
     Dates: start: 20230718
  9. SODIUM GUALENATE [Concomitant]
     Active Substance: SODIUM GUALENATE
     Indication: Stomatitis
     Route: 048
     Dates: start: 20230725
  10. DEXAMETHASONE [Concomitant]
     Active Substance: DEXAMETHASONE
     Indication: Stomatitis
     Route: 048
     Dates: start: 20230725
  11. GLYCERIN [Concomitant]
     Active Substance: GLYCERIN
     Indication: Stomatitis
     Route: 048
     Dates: start: 20230725

REACTIONS (1)
  - Pneumonitis [Fatal]

NARRATIVE: CASE EVENT DATE: 20230801
